FAERS Safety Report 8326771 (Version 7)
Quarter: 2014Q2

REPORT INFORMATION
  Report Type: Spontaneous
  Country: US (occurrence: None)
  Receive Date: 20111229
  Receipt Date: 20140401
  Transmission Date: 20141212
  Serious: Yes (Hospitalization, Other)
  Sender: FDA-Public Use
  Company Number: CIP11001508

PATIENT
  Age: 58 Year
  Sex: Female
  Weight: 56.2 kg

DRUGS (9)
  1. ACTONEL [Suspect]
     Indication: OSTEOPOROSIS
     Route: 048
     Dates: start: 20080401, end: 201002
  2. FOSAMAX [Suspect]
     Indication: OSTEOPOROSIS
     Route: 048
     Dates: start: 20030607, end: 20080401
  3. FOSAMAX D [Suspect]
     Indication: OSTEOPOROSIS
     Route: 048
  4. BONIVA [Suspect]
     Indication: OSTEOPOROSIS
  5. CALCIUM + VITAMIN D   /01483701/  (CALCIUM, COLECALCIFEROL) [Concomitant]
  6. CLARITIN-D 12 HOUR [Concomitant]
  7. OXYCODONE  / ACETAMINOPHEN (OXYCODONE HYDROCHLORIDE, PARACETAMOL) [Concomitant]
  8. LOVASTATIN [Concomitant]
  9. NASONEX [Concomitant]

REACTIONS (11)
  - Stress fracture [None]
  - Femur fracture [None]
  - Fracture displacement [None]
  - Low turnover osteopathy [None]
  - Skeletal injury [None]
  - Toxicity to various agents [None]
  - Pain [None]
  - Drug ineffective [None]
  - Drug intolerance [None]
  - Osteoporosis [None]
  - Condition aggravated [None]
